FAERS Safety Report 5127389-2 (Version None)
Quarter: 2006Q4

REPORT INFORMATION
  Report Type: 
  Country: None (occurrence: None)
  Receive Date: 20061013
  Receipt Date: 20061013
  Transmission Date: 20070319
  Serious: Yes (Hospitalization)
  Sender: FDA-Public Use
  Company Number: None

PATIENT
  Age: 78 Year
  Sex: Male
  Weight: 60.3284 kg

DRUGS (1)
  1. MEGACE [Suspect]
     Indication: WEIGHT DECREASED
     Dosage: 800MG DAILY PO
     Route: 048
     Dates: start: 20060722, end: 20060907

REACTIONS (7)
  - ACIDOSIS [None]
  - ASTHENIA [None]
  - CONDITION AGGRAVATED [None]
  - CYSTITIS ESCHERICHIA [None]
  - ENTEROCUTANEOUS FISTULA [None]
  - ESCHERICHIA SEPSIS [None]
  - RENAL FAILURE [None]
